FAERS Safety Report 8037344-0 (Version None)
Quarter: 2012Q1

REPORT INFORMATION
  Report Type: 
  Country: None (occurrence: None)
  Receive Date: 20120111
  Receipt Date: 20120109
  Transmission Date: 20120608
  Serious: Yes (Hospitalization, Other)
  Sender: FDA-Public Use
  Company Number: TW-ABBOTT-11P-153-0855267-00

PATIENT
  Sex: Female
  Weight: 53 kg

DRUGS (71)
  1. LEFLUNOMIDE [Concomitant]
     Route: 048
     Dates: start: 20110324
  2. GLIMEPIRIDE [Concomitant]
     Route: 048
     Dates: start: 20110709, end: 20110717
  3. ACARBOSE [Concomitant]
     Indication: PRODUCT USED FOR UNKNOWN INDICATION
     Route: 048
     Dates: end: 20110708
  4. ACETAMINOPHEN [Concomitant]
     Route: 048
     Dates: start: 20110723
  5. ACETAMINOPHEN [Concomitant]
     Route: 048
     Dates: start: 20110805
  6. SULFASALAZINE [Concomitant]
     Indication: PRODUCT USED FOR UNKNOWN INDICATION
     Route: 048
  7. NITROGLYCERIN [Concomitant]
     Indication: PRODUCT USED FOR UNKNOWN INDICATION
     Route: 060
  8. CEFAZOLIN SODIUM [Concomitant]
     Indication: PRODUCT USED FOR UNKNOWN INDICATION
     Route: 042
  9. CEFAZOLIN SODIUM [Concomitant]
     Route: 042
     Dates: start: 20110729
  10. GLIPIZIDE [Concomitant]
     Indication: PRODUCT USED FOR UNKNOWN INDICATION
     Dosage: IRREGULAR
     Route: 048
     Dates: end: 20110729
  11. CIMETIDINE [Concomitant]
     Indication: PRODUCT USED FOR UNKNOWN INDICATION
     Route: 048
  12. ULTRACET [Concomitant]
     Dosage: TWICE A DAY AS NEEDED
     Route: 048
     Dates: start: 20110805, end: 20110808
  13. CEFTAZIDIME [Concomitant]
     Dosage: 500MG/VIAL
     Route: 042
     Dates: start: 20110721, end: 20110722
  14. GENTAMICIN SULFATE [Concomitant]
     Indication: PRODUCT USED FOR UNKNOWN INDICATION
     Dosage: STAT - 80MG/ML/VIAL
     Route: 042
     Dates: start: 20110721, end: 20110721
  15. GENTAMICIN SULFATE [Concomitant]
     Dosage: 80MG/ML/VIAL
     Route: 042
     Dates: start: 20110721, end: 20110721
  16. LEFLUNOMIDE [Concomitant]
     Indication: PRODUCT USED FOR UNKNOWN INDICATION
     Route: 048
  17. ACARBOSE [Concomitant]
     Route: 048
     Dates: start: 20110708, end: 20110801
  18. ACETAMINOPHEN [Concomitant]
     Indication: HEADACHE
     Route: 048
     Dates: end: 20110713
  19. VALSARTAN [Concomitant]
     Indication: PRODUCT USED FOR UNKNOWN INDICATION
     Route: 048
  20. RALOXIFENE HCL [Concomitant]
     Indication: PRODUCT USED FOR UNKNOWN INDICATION
     Route: 048
  21. GLIPIZIDE [Concomitant]
     Dosage: IRREGULAR - 1 IN AM; 1 BEFORE LUNCH
     Route: 048
     Dates: start: 20110729
  22. CEFTAZIDIME [Concomitant]
     Indication: PRODUCT USED FOR UNKNOWN INDICATION
     Dosage: STAT - 500MG/VIAL
     Route: 042
     Dates: start: 20110721, end: 20110721
  23. GENTAMICIN SULFATE [Concomitant]
     Dosage: STAT - 80MG/ML/VIAL
     Route: 042
     Dates: start: 20110721, end: 20110721
  24. GENTAMICIN SULFATE [Concomitant]
     Dosage: 80MG/ML/VIAL
     Route: 042
     Dates: start: 20110721, end: 20110722
  25. REGULAR HM INSULIN [Concomitant]
     Dosage: 100IU/ML, 10ML/VIAL
     Route: 058
     Dates: start: 20110804
  26. HUMIRA [Suspect]
     Indication: RHEUMATOID ARTHRITIS
     Route: 058
     Dates: start: 20110421, end: 20110616
  27. GLIMEPIRIDE [Concomitant]
     Indication: PRODUCT USED FOR UNKNOWN INDICATION
     Route: 048
  28. LIDOCAINE HYDROCHLORIDE [Concomitant]
     Indication: PRODUCT USED FOR UNKNOWN INDICATION
     Dates: start: 20110715, end: 20110715
  29. ULTRACET [Concomitant]
     Route: 048
     Dates: start: 20110808
  30. GENTAMICIN SULFATE [Concomitant]
     Dosage: 80MG/ML/VIAL
     Route: 042
     Dates: start: 20110721, end: 20110721
  31. FOLIC ACID [Concomitant]
     Indication: PRODUCT USED FOR UNKNOWN INDICATION
     Dosage: STAT
     Route: 048
     Dates: start: 20110803, end: 20110803
  32. PREDNISOLONE [Concomitant]
     Route: 048
     Dates: start: 20110805
  33. HYDROXYCHLOROQUINE SULFATE [Concomitant]
     Indication: PRODUCT USED FOR UNKNOWN INDICATION
     Route: 048
  34. ACETAMINOPHEN 300MG + PHENYLEPHRINE 5MG + ETC [Concomitant]
     Indication: PRODUCT USED FOR UNKNOWN INDICATION
     Route: 048
  35. ULTRACET [Concomitant]
     Route: 048
     Dates: start: 20110719, end: 20110729
  36. FAMOTIDINE [Concomitant]
     Indication: PRODUCT USED FOR UNKNOWN INDICATION
     Route: 048
  37. GLIMEPIRIDE [Concomitant]
     Route: 048
     Dates: start: 20110717
  38. CEFADROXIL MONOHYDRATE [Concomitant]
     Indication: PRODUCT USED FOR UNKNOWN INDICATION
     Route: 048
  39. LORATADINE AND PSEUDOEPHEDRINE SULFATE [Concomitant]
     Indication: PRODUCT USED FOR UNKNOWN INDICATION
     Dosage: STAT
     Route: 048
     Dates: start: 20110727, end: 20110727
  40. AMIODARONE HCL [Concomitant]
     Indication: PRODUCT USED FOR UNKNOWN INDICATION
     Route: 048
     Dates: start: 20110802
  41. PREDNISOLONE [Concomitant]
     Indication: PRODUCT USED FOR UNKNOWN INDICATION
     Route: 048
     Dates: end: 20110728
  42. PREDNISOLONE [Concomitant]
     Route: 048
     Dates: start: 20110803, end: 20110803
  43. BROWN MIXTURE [Concomitant]
     Indication: PRODUCT USED FOR UNKNOWN INDICATION
     Route: 048
  44. ULTRACET [Concomitant]
     Dosage: EVERY 6 HOURS AS NEEDED
     Route: 048
     Dates: start: 20110729, end: 20110805
  45. CIPROFLOXACIN [Concomitant]
     Indication: PRODUCT USED FOR UNKNOWN INDICATION
     Route: 042
     Dates: start: 20110725, end: 20110729
  46. BISOPROLOL FUMARATE [Concomitant]
     Indication: PRODUCT USED FOR UNKNOWN INDICATION
     Route: 048
     Dates: start: 20110802, end: 20110823
  47. BISOPROLOL FUMARATE [Concomitant]
     Route: 048
     Dates: start: 20110823
  48. FAMOTIDINE [Concomitant]
     Route: 048
  49. ACETAMINOPHEN [Concomitant]
     Route: 048
     Dates: start: 20110713, end: 20110713
  50. ACETAMINOPHEN [Concomitant]
     Dosage: EVERY 6 HOURS AS NEEDED
     Route: 048
     Dates: start: 20110721, end: 20110808
  51. FLURBIPROFEN [Concomitant]
     Indication: PRODUCT USED FOR UNKNOWN INDICATION
     Dosage: 14CM X 10CM/PATCH
     Route: 061
  52. MEPERIDINE HCL [Concomitant]
     Dosage: 50MG/1ML/AMP
     Route: 030
     Dates: start: 20110719, end: 20110719
  53. CEFTAZIDIME [Concomitant]
     Dosage: 500MG/VIAL
     Route: 042
     Dates: start: 20110723, end: 20110723
  54. FLUNARIZINE [Concomitant]
     Indication: PRODUCT USED FOR UNKNOWN INDICATION
     Dosage: AT HOUR OF SLEEP
     Route: 048
     Dates: start: 20110722
  55. REGULAR HM INSULIN [Concomitant]
     Indication: PRODUCT USED FOR UNKNOWN INDICATION
     Dosage: STAT - 100IU/ML, 10ML/VIAL
     Route: 058
     Dates: start: 20110721, end: 20110721
  56. SULINDAC [Concomitant]
     Indication: PRODUCT USED FOR UNKNOWN INDICATION
     Dosage: STAT
     Route: 048
     Dates: start: 20110726, end: 20110726
  57. ASPIRIN [Concomitant]
     Indication: PRODUCT USED FOR UNKNOWN INDICATION
     Route: 048
  58. ASPIRIN [Concomitant]
     Route: 048
     Dates: start: 20110802, end: 20110802
  59. PREDNISOLONE [Concomitant]
     Route: 048
     Dates: start: 20110728, end: 20110803
  60. ACETAMINOPHEN [Concomitant]
     Indication: PYREXIA
     Dosage: EVERY 6 HOURS AS NEEDED
     Route: 048
     Dates: start: 20110713, end: 20110718
  61. ACETAMINOPHEN [Concomitant]
     Route: 048
     Dates: start: 20110718, end: 20110719
  62. ACETAMINOPHEN [Concomitant]
     Route: 048
     Dates: start: 20110808
  63. ACETAMINOPHEN [Concomitant]
     Route: 048
     Dates: start: 20110723, end: 20110723
  64. AMLODIPINE [Concomitant]
     Indication: PRODUCT USED FOR UNKNOWN INDICATION
     Route: 048
  65. DEXAMETHASONE TAB [Concomitant]
     Indication: PRODUCT USED FOR UNKNOWN INDICATION
     Dosage: 5GM/TUBE
  66. ULTRACET [Concomitant]
     Indication: HEADACHE
     Route: 048
     Dates: start: 20110719, end: 20110719
  67. MEPERIDINE HCL [Concomitant]
     Indication: PRODUCT USED FOR UNKNOWN INDICATION
     Dosage: STAT - 50MG/1ML/AMP
     Route: 030
     Dates: start: 20110719, end: 20110719
  68. LORATADINE AND PSEUDOEPHEDRINE SULFATE [Concomitant]
     Route: 048
     Dates: start: 20110727, end: 20110728
  69. SENNOSIDE A+B CALCIUM [Concomitant]
     Indication: PRODUCT USED FOR UNKNOWN INDICATION
     Dosage: AT HOUR OF SLEEP
     Route: 048
     Dates: start: 20110802
  70. TRIAMCINOLONE IN ORABASE 5 GM/PC [Concomitant]
     Indication: MOUTH ULCERATION
     Dosage: STAT
     Dates: start: 20110802, end: 20110802
  71. FOLIC ACID [Concomitant]
     Route: 048
     Dates: start: 20110803

REACTIONS (37)
  - TRICUSPID VALVE INCOMPETENCE [None]
  - ATRIAL FIBRILLATION [None]
  - COMA [None]
  - HYPOGLYCAEMIA [None]
  - ANAEMIA [None]
  - COMPRESSION FRACTURE [None]
  - BACTERIAL SEPSIS [None]
  - AORTIC CALCIFICATION [None]
  - ARTHRALGIA [None]
  - NEPHROLITHIASIS [None]
  - BURSITIS [None]
  - SCOLIOSIS [None]
  - WEIGHT DECREASED [None]
  - SPINAL OSTEOARTHRITIS [None]
  - HEADACHE [None]
  - CONSTIPATION [None]
  - TEMPORAL ARTERITIS [None]
  - RHINORRHOEA [None]
  - BONE LESION [None]
  - MITRAL VALVE INCOMPETENCE [None]
  - DIABETES MELLITUS INADEQUATE CONTROL [None]
  - PULMONARY HYPERTENSION [None]
  - TENDONITIS [None]
  - PYREXIA [None]
  - LUNG INFILTRATION [None]
  - HYPERTENSION [None]
  - RHEUMATOID ARTHRITIS [None]
  - OSTEOPOROSIS [None]
  - CARDIOMEGALY [None]
  - CEREBRAL INFARCTION [None]
  - DISCOMFORT [None]
  - ABDOMINAL PAIN UPPER [None]
  - INFLUENZA [None]
  - EXOSTOSIS [None]
  - NEURODEGENERATIVE DISORDER [None]
  - COUGH [None]
  - ARTHROPATHY [None]
